FAERS Safety Report 17987498 (Version 2)
Quarter: 2020Q3

REPORT INFORMATION
  Report Type: Spontaneous
  Country: US (occurrence: US)
  Receive Date: 20200707
  Receipt Date: 20200707
  Transmission Date: 20201103
  Serious: Yes (Other)
  Sender: FDA-Public Use
  Company Number: US-GLAXOSMITHKLINE-US2020120918

PATIENT
  Age: 38 Year

DRUGS (1)
  1. RANITIDINE. [Suspect]
     Active Substance: RANITIDINE

REACTIONS (1)
  - Oesophageal carcinoma [Unknown]
